FAERS Safety Report 8448408-1 (Version None)
Quarter: 2012Q2

REPORT INFORMATION
  Report Type: 
  Country: None (occurrence: None)
  Receive Date: 20120619
  Receipt Date: 20120604
  Transmission Date: 20120825
  Serious: Yes (Other)
  Sender: FDA-Public Use
  Company Number: US-WATSON-2012-09672

PATIENT
  Sex: Male
  Weight: 74 kg

DRUGS (2)
  1. LORAZEPAM [Concomitant]
     Indication: ANXIETY
     Dosage: UNK
     Route: 065
  2. FENTANYL-50 [Suspect]
     Indication: PAIN
     Dosage: 1 PATCH EVERY 72 HOURS
     Route: 062
     Dates: start: 20120501

REACTIONS (9)
  - COLD SWEAT [None]
  - LOSS OF CONSCIOUSNESS [None]
  - DYSPNOEA [None]
  - DIZZINESS [None]
  - NAUSEA [None]
  - DECREASED APPETITE [None]
  - AGITATION [None]
  - PERSONALITY CHANGE [None]
  - CONFUSIONAL STATE [None]
